FAERS Safety Report 25200354 (Version 1)
Quarter: 2025Q2

REPORT INFORMATION
  Report Type: Report from Study
  Country: US (occurrence: US)
  Receive Date: 20250415
  Receipt Date: 20250415
  Transmission Date: 20250716
  Serious: Yes (Hospitalization, Other)
  Sender: TAKEDA
  Company Number: US-TAKEDA-2025TUS024683

PATIENT
  Sex: Male

DRUGS (18)
  1. FRUQUINTINIB [Suspect]
     Active Substance: FRUQUINTINIB
     Indication: Colon cancer
  2. ADVIL [Concomitant]
     Active Substance: IBUPROFEN
  3. ASPIRIN [Concomitant]
     Active Substance: ASPIRIN
  4. ATORVASTATIN [Concomitant]
     Active Substance: ATORVASTATIN
  5. MINERALS\VITAMINS [Concomitant]
     Active Substance: MINERALS\VITAMINS
  6. FENTANYL [Concomitant]
     Active Substance: FENTANYL
  7. ISOSORBIDE DINITRATE [Concomitant]
     Active Substance: ISOSORBIDE DINITRATE
  8. KETOROLAC [Concomitant]
     Active Substance: KETOROLAC TROMETHAMINE
  9. LACTULOSE [Concomitant]
     Active Substance: LACTULOSE
  10. MAGNESIUM CITRATE [Concomitant]
     Active Substance: MAGNESIUM CITRATE
  11. ONDANSETRON [Concomitant]
     Active Substance: ONDANSETRON
  12. PLAVIX [Concomitant]
     Active Substance: CLOPIDOGREL BISULFATE
  13. PROCHLORPERAZINE MALEATE [Concomitant]
     Active Substance: PROCHLORPERAZINE MALEATE
  14. RANOLAZINE [Concomitant]
     Active Substance: RANOLAZINE
  15. TRAMADOL HCL [Concomitant]
     Active Substance: TRAMADOL HYDROCHLORIDE
  16. TYLENOL EXTRA STRENGTH [Concomitant]
     Active Substance: ACETAMINOPHEN
  17. CIPROFLOXACIN [Concomitant]
     Active Substance: CIPROFLOXACIN
  18. METRONIDAZOLE [Concomitant]
     Active Substance: METRONIDAZOLE

REACTIONS (5)
  - Gastrointestinal infection [Not Recovered/Not Resolved]
  - Haematochezia [Not Recovered/Not Resolved]
  - Abdominal pain upper [Not Recovered/Not Resolved]
  - White blood cell count increased [Recovering/Resolving]
  - Haemoglobin decreased [Not Recovered/Not Resolved]
